FAERS Safety Report 8355229-7 (Version None)
Quarter: 2012Q2

REPORT INFORMATION
  Report Type: 
  Country: None (occurrence: None)
  Receive Date: 20120511
  Receipt Date: 20120430
  Transmission Date: 20120825
  Serious: Yes (Hospitalization, Other)
  Sender: FDA-Public Use
  Company Number: US-ELI_LILLY_AND_COMPANY-US201009000472

PATIENT
  Sex: Female
  Weight: 84.354 kg

DRUGS (13)
  1. FORTEO [Suspect]
     Dosage: 20 UG, DAILY (1/D)
     Route: 058
  2. FORTEO [Suspect]
     Dosage: 20 UG, QD
     Route: 058
  3. FORTEO [Suspect]
     Dosage: 20 UG, QD
     Route: 058
  4. CALCIUM [Concomitant]
  5. FORTEO [Suspect]
     Indication: OSTEOPOROSIS
     Dosage: 20 UG, DAILY (1/D)
     Route: 058
     Dates: start: 20100501
  6. FORTEO [Suspect]
     Dosage: 20 UG, QD
     Route: 058
  7. FORTEO [Suspect]
     Dosage: 20 UG, QD
     Route: 058
     Dates: end: 20120201
  8. ASCORBIC ACID [Concomitant]
  9. HYDROCODONE BITARTRATE [Concomitant]
  10. FORTEO [Suspect]
     Dosage: 20 UG, QD
     Route: 058
  11. VITAMIN D [Concomitant]
  12. IRON [Concomitant]
  13. FORTEO [Suspect]
     Dosage: 20 UG, QD
     Route: 058

REACTIONS (20)
  - ASTHENIA [None]
  - PYELONEPHRITIS [None]
  - BACK DISORDER [None]
  - RED BLOOD CELL COUNT DECREASED [None]
  - MOBILITY DECREASED [None]
  - INJECTION SITE ERYTHEMA [None]
  - INTERVERTEBRAL DISC DEGENERATION [None]
  - URINARY TRACT INFECTION [None]
  - BACK PAIN [None]
  - PAIN IN EXTREMITY [None]
  - LABORATORY TEST ABNORMAL [None]
  - NERVE COMPRESSION [None]
  - COLONOSCOPY [None]
  - NEPHROLITHIASIS [None]
  - JOINT DESTRUCTION [None]
  - SOMNOLENCE [None]
  - VITAMIN D DECREASED [None]
  - FLANK PAIN [None]
  - ARTHRITIS [None]
  - INSOMNIA [None]
